FAERS Safety Report 15984904 (Version 1)
Quarter: 2019Q1

REPORT INFORMATION
  Report Type: Spontaneous
  Country: US (occurrence: US)
  Receive Date: 20190219
  Receipt Date: 20190219
  Transmission Date: 20190418
  Serious: Yes (Other)
  Sender: FDA-Public Use
  Company Number: None

PATIENT
  Age: 54 Year
  Sex: Female
  Weight: 71.42 kg

DRUGS (6)
  1. IRINOTECAN [Concomitant]
     Active Substance: IRINOTECAN
  2. EMEND [Concomitant]
     Active Substance: APREPITANT
  3. LONSULF [Concomitant]
  4. ERBITUX [Concomitant]
     Active Substance: CETUXIMAB
  5. CAPICITABINE [Concomitant]
  6. VECTIBIX [Suspect]
     Active Substance: PANITUMUMAB
     Indication: COLON CANCER
     Dosage: ?          OTHER FREQUENCY:EVERY 2 WEEKS;?
     Route: 042
     Dates: start: 20190107

REACTIONS (1)
  - Disease progression [None]
